FAERS Safety Report 6669804-9 (Version None)
Quarter: 2010Q2

REPORT INFORMATION
  Report Type: 
  Country: None (occurrence: None)
  Receive Date: 20100402
  Receipt Date: 20100204
  Transmission Date: 20101027
  Serious: Yes (Other)
  Sender: FDA-Public Use
  Company Number: WAES 0912FIN00011

PATIENT
  Age: 61 Year
  Sex: Male

DRUGS (11)
  1. TAB LAROPIPRANT (+) NIACIN [Suspect]
     Indication: HIGH DENSITY LIPOPROTEIN DECREASED
     Dosage: 2 GM/DAILY 20MG-1G GM/DAILY 40 MG-2G GM/DAILY
     Route: 048
     Dates: start: 20090423, end: 20090501
  2. TAB LAROPIPRANT (+) NIACIN [Suspect]
     Indication: HIGH DENSITY LIPOPROTEIN DECREASED
     Dosage: 2 GM/DAILY 20MG-1G GM/DAILY 40 MG-2G GM/DAILY
     Route: 048
     Dates: start: 20090501, end: 20090617
  3. TAB LAROPIPRANT (+) NIACIN [Suspect]
     Indication: HIGH DENSITY LIPOPROTEIN DECREASED
     Dosage: 2 GM/DAILY 20MG-1G GM/DAILY 40 MG-2G GM/DAILY
     Route: 048
     Dates: start: 20090618, end: 20091208
  4. VYTORIN [Suspect]
     Indication: HYPERCHOLESTEROLAEMIA
     Dosage: 10-40 MG/DAILY
     Route: 048
     Dates: start: 20090324, end: 20091208
  5. OMACOR [Concomitant]
  6. AMLODIPINE [Concomitant]
  7. ASPIRIN [Concomitant]
  8. BIDOPROLOL [Concomitant]
  9. HYDROCHLOROTHIAZIDE [Concomitant]
  10. LANSOPRAZOLE [Concomitant]
  11. METFORMIN HCL [Concomitant]

REACTIONS (2)
  - ALCOHOL USE [None]
  - HEPATITIS [None]
